FAERS Safety Report 8392543-3 (Version None)
Quarter: 2012Q2

REPORT INFORMATION
  Report Type: 
  Country: None (occurrence: None)
  Receive Date: 20120529
  Receipt Date: 20120518
  Transmission Date: 20120825
  Serious: Yes (Other)
  Sender: FDA-Public Use
  Company Number: US-ASTRAZENECA-2011SE68774

PATIENT
  Age: 48 Year
  Sex: Male

DRUGS (2)
  1. NEXIUM [Suspect]
     Route: 048
     Dates: start: 20110922
  2. PRILOSEC [Suspect]
     Route: 048
     Dates: start: 20110721, end: 20110831

REACTIONS (3)
  - NEOPLASM MALIGNANT [None]
  - MALAISE [None]
  - DRUG INEFFECTIVE [None]
